FAERS Safety Report 14692371 (Version 1)
Quarter: 2018Q1

REPORT INFORMATION
  Report Type: Spontaneous
  Country: GB (occurrence: GB)
  Receive Date: 20180329
  Receipt Date: 20180329
  Transmission Date: 20180509
  Serious: Yes (Other)
  Sender: FDA-Public Use
  Company Number: GB-DEXPHARM-20180196

PATIENT
  Sex: Female

DRUGS (1)
  1. CORSODYL MOUTHWASH MOUTH WASH [Suspect]
     Active Substance: CHLORHEXIDINE GLUCONATE
     Indication: GINGIVAL BLEEDING
     Dosage: UNK

REACTIONS (1)
  - Acute myeloid leukaemia [Unknown]
